FAERS Safety Report 5400965-5 (Version None)
Quarter: 2007Q3

REPORT INFORMATION
  Report Type: 
  Country: None (occurrence: None)
  Receive Date: 20070730
  Receipt Date: 20070719
  Transmission Date: 20080115
  Serious: Yes (Hospitalization)
  Sender: FDA-Public Use
  Company Number: FR-GENENTECH-242609

PATIENT
  Age: 67 Year
  Sex: Female

DRUGS (6)
  1. RITUXAN [Suspect]
     Indication: B-CELL LYMPHOMA
     Route: 042
     Dates: start: 20050915, end: 20060307
  2. DOXORUBICIN HCL [Suspect]
     Indication: B-CELL LYMPHOMA
     Dosage: UNK, UNK
     Route: 042
     Dates: start: 20050915, end: 20060307
  3. VINCRISTINE [Suspect]
     Indication: B-CELL LYMPHOMA
     Route: 042
     Dates: start: 20050915, end: 20060307
  4. ENDOXAN ASTA [Suspect]
     Dosage: 100 MG, UNK
     Route: 042
     Dates: start: 20050915, end: 20060307
  5. TENSTATEN [Concomitant]
     Indication: DRUG USE FOR UNKNOWN INDICATION
  6. FOSAMAX [Concomitant]
     Indication: DRUG USE FOR UNKNOWN INDICATION

REACTIONS (6)
  - BRONCHITIS [None]
  - EAR INFECTION [None]
  - LYMPHADENOPATHY [None]
  - PHARYNGITIS [None]
  - REFRACTORY ANAEMIA [None]
  - RHINITIS [None]
